FAERS Safety Report 9187341 (Version 2)
Quarter: 2013Q2

REPORT INFORMATION
  Report Type: Spontaneous
  Country: US (occurrence: US)
  Receive Date: 20130325
  Receipt Date: 20130423
  Transmission Date: 20140414
  Serious: Yes (Hospitalization, Other)
  Sender: FDA-Public Use
  Company Number: US-BRISTOL-MYERS SQUIBB COMPANY-17483629

PATIENT
  Sex: Male

DRUGS (3)
  1. REYATAZ CAPS 200 MG [Suspect]
  2. PREVACID [Suspect]
  3. BACTRIM [Concomitant]
     Indication: PROPHYLAXIS

REACTIONS (3)
  - Neutropenia [Unknown]
  - White blood cell count decreased [Unknown]
  - Drug ineffective [Unknown]
